FAERS Safety Report 6238012-8 (Version None)
Quarter: 2009Q2

REPORT INFORMATION
  Report Type: 
  Country: None (occurrence: None)
  Receive Date: 20090622
  Receipt Date: 20090616
  Transmission Date: 20091009
  Serious: Yes (Other)
  Sender: FDA-Public Use
  Company Number: BE-BAYER-200915576GPV

PATIENT
  Age: 51 Year
  Sex: Female

DRUGS (7)
  1. BETAFERON [Suspect]
     Indication: MULTIPLE SCLEROSIS
     Route: 003
     Dates: start: 20081001, end: 20081201
  2. NOBITEN [Concomitant]
  3. VASEXTEN [Concomitant]
  4. CALCIUM [Concomitant]
  5. RANITIDINE [Concomitant]
  6. LOSFERRON [Concomitant]
  7. GABAPENTIN [Concomitant]
     Indication: NEURALGIA
     Dosage: TOTAL DAILY DOSE: 1200 MG
     Dates: start: 20081001, end: 20081201

REACTIONS (1)
  - MUSCLE SPASTICITY [None]
